FAERS Safety Report 4365277-X (Version None)
Quarter: 2004Q2

REPORT INFORMATION
  Report Type: 
  Country: None (occurrence: None)
  Receive Date: 20040521
  Receipt Date: 20040511
  Transmission Date: 20050107
  Serious: Yes (Hospitalization)
  Sender: FDA-Public Use
  Company Number: A02200401597

PATIENT
  Age: 88 Year
  Sex: Male

DRUGS (5)
  1. STILNOX (ZOLPIDEM) 10 MG [Suspect]
     Indication: INSOMNIA
     Dosage: 10 MG OD
     Route: 048
     Dates: end: 20031021
  2. DI-ANTALVIC (PARACETAMOL/DEXTROPROPOXYPHEN) [Concomitant]
  3. PERMIXON (SERENOA REPENS) [Concomitant]
  4. OXAZEPAM [Concomitant]
  5. OMIX (TAMSULOSIN HYDROCHLORIDE) [Concomitant]

REACTIONS (3)
  - BEDRIDDEN [None]
  - FALL [None]
  - URINARY INCONTINENCE [None]
